FAERS Safety Report 15779923 (Version 1)
Quarter: 2019Q1

REPORT INFORMATION
  Report Type: Spontaneous
  Country: CN (occurrence: CN)
  Receive Date: 20190102
  Receipt Date: 20190102
  Transmission Date: 20190417
  Serious: Yes (Other)
  Sender: FDA-Public Use
  Company Number: CN-ROCHE-2238428

PATIENT
  Age: 62 Year
  Sex: Female

DRUGS (2)
  1. GEFITINIB. [Concomitant]
     Active Substance: GEFITINIB
     Route: 065
     Dates: start: 201602, end: 201707
  2. BEVACIZUMAB. [Suspect]
     Active Substance: BEVACIZUMAB
     Indication: NON-SMALL CELL LUNG CANCER
     Route: 065
     Dates: start: 201109, end: 201508

REACTIONS (4)
  - Proteinuria [Unknown]
  - Thrombocytopenia [Unknown]
  - Hyperbilirubinaemia [Unknown]
  - Splenomegaly [Unknown]
